FAERS Safety Report 4341385-4 (Version None)
Quarter: 2004Q2

REPORT INFORMATION
  Report Type: 
  Country: None (occurrence: None)
  Receive Date: 20040413
  Receipt Date: 20040329
  Transmission Date: 20050107
  Serious: Yes (Hospitalization)
  Sender: FDA-Public Use
  Company Number: 2004-BP-02259YA

PATIENT
  Age: 72 Year
  Sex: Male

DRUGS (8)
  1. HARNAL (TAMSULOSIN) (NR) [Suspect]
     Indication: BENIGN PROSTATIC HYPERPLASIA
     Dosage: 0.1 MG; PO
     Route: 048
     Dates: start: 20031009, end: 20031022
  2. URSODEXYCHOLIC ACID [Concomitant]
  3. KANAMYCIN SULFATE [Concomitant]
  4. SPIRONOLACTONE [Concomitant]
  5. FUROSEMIDE [Concomitant]
  6. ALLOPURINOL [Concomitant]
  7. GANATON (ITOPRIDE HYDROCHLORIDE) [Concomitant]
  8. MAGNESIUM OXIDE [Concomitant]

REACTIONS (13)
  - ALCOHOL USE [None]
  - BLOOD PRESSURE DECREASED [None]
  - CONTUSION [None]
  - DEHYDRATION [None]
  - DISEASE RECURRENCE [None]
  - ELECTROCARDIOGRAM ST SEGMENT DEPRESSION [None]
  - FALL [None]
  - HEAD INJURY [None]
  - HEPATIC NEOPLASM MALIGNANT [None]
  - HEPATITIS [None]
  - LOSS OF CONSCIOUSNESS [None]
  - OLIGURIA [None]
  - VASCULAR RESISTANCE SYSTEMIC DECREASED [None]
